FAERS Safety Report 12203182 (Version 1)
Quarter: 2016Q1

REPORT INFORMATION
  Report Type: Spontaneous
  Country: US (occurrence: None)
  Receive Date: 20160321
  Receipt Date: 20160321
  Transmission Date: 20160526
  Serious: No
  Sender: FDA-Public Use
  Company Number: None

PATIENT
  Age: 65 Year
  Sex: Male

DRUGS (1)
  1. TEMOZOLOMIDE 100MG CAP TEVA [Suspect]
     Active Substance: TEMOZOLOMIDE
     Indication: DRUG THERAPY
     Dosage: 300MG DAILY FOR 5 DAYS PO
     Route: 048
     Dates: start: 20151125

REACTIONS (1)
  - Vomiting [None]

NARRATIVE: CASE EVENT DATE: 201603
